FAERS Safety Report 21553436 (Version 1)
Quarter: 2022Q4

REPORT INFORMATION
  Report Type: Spontaneous
  Country: US (occurrence: US)
  Receive Date: 20221104
  Receipt Date: 20221104
  Transmission Date: 20230113
  Serious: Yes (Other)
  Sender: FDA-Public Use
  Company Number: US-MYLANLABS-2022M1120604

PATIENT
  Age: 37 Year
  Sex: Female

DRUGS (6)
  1. ESCITALOPRAM [Suspect]
     Active Substance: ESCITALOPRAM OXALATE
     Indication: Bulimia nervosa
     Dosage: 10 MILLIGRAM, QD
     Route: 065
  2. ESCITALOPRAM [Suspect]
     Active Substance: ESCITALOPRAM OXALATE
     Dosage: 20 MILLIGRAM, QD
     Route: 065
  3. ESCITALOPRAM [Suspect]
     Active Substance: ESCITALOPRAM OXALATE
     Dosage: 40 MILLIGRAM, QD, ACCIDENTLY TOOK ESCITALOPRAM 40MG PER DAY DURING WEEK 7 OF TREATMENT
     Route: 065
  4. LAMOTRIGINE [Suspect]
     Active Substance: LAMOTRIGINE
     Indication: Bulimia nervosa
     Dosage: UNK, INITIAL DOSE UNKNOWN
     Route: 065
  5. LAMOTRIGINE [Suspect]
     Active Substance: LAMOTRIGINE
     Dosage: 150 MILLIGRAM, QD, OVER 8 WEEKS, THE DOSE OF LAMOTRIGINE WAS TITRATED TO 150 MG/DAY
     Route: 065
  6. TRAZODONE [Suspect]
     Active Substance: TRAZODONE HYDROCHLORIDE
     Indication: Bulimia nervosa
     Dosage: 100 MILLIGRAM, PRN AT BEDTIME AS NEEDED
     Route: 065

REACTIONS (4)
  - Therapy non-responder [Unknown]
  - Product dose omission issue [Unknown]
  - Accidental overdose [Unknown]
  - Off label use [Unknown]
